FAERS Safety Report 19881147 (Version 1)
Quarter: 2021Q3

REPORT INFORMATION
  Report Type: Spontaneous
  Country: BE (occurrence: BE)
  Receive Date: 20210924
  Receipt Date: 20210924
  Transmission Date: 20211014
  Serious: Yes (Hospitalization, Other)
  Sender: FDA-Public Use
  Company Number: BE-ASTRAZENECA-2021A731894

PATIENT
  Age: 27444 Day
  Sex: Male

DRUGS (12)
  1. RELVAR [Concomitant]
     Active Substance: FLUTICASONE FUROATE\VILANTEROL TRIFENATATE
     Dosage: 92 ??G /22 ??G ONCE A DAY
     Route: 065
     Dates: end: 20210906
  2. FASENRA [Suspect]
     Active Substance: BENRALIZUMAB
     Indication: ASTHMA
     Route: 058
     Dates: start: 20200804, end: 20200830
  3. DEXAMETHASONE. [Concomitant]
     Active Substance: DEXAMETHASONE
  4. AMIKACIN. [Concomitant]
     Active Substance: AMIKACIN
     Dates: end: 20210906
  5. BURINEX [Concomitant]
     Active Substance: BUMETANIDE
     Dosage: 5 MG 0.25 PER DAY
     Route: 065
     Dates: end: 20210906
  6. CORDARONE [Concomitant]
     Active Substance: AMIODARONE HYDROCHLORIDE
     Dosage: 200 MG 0.5 PER DAY
     Route: 065
     Dates: end: 20210906
  7. LIXIANA [Concomitant]
     Active Substance: EDOXABAN TOSYLATE
     Dosage: 30 MG 1 PER DAY
     Route: 065
     Dates: end: 20210906
  8. BISOPROLOL [Concomitant]
     Active Substance: BISOPROLOL
     Dosage: 1.25 MG 1 PER DAY
     Route: 065
     Dates: end: 20210906
  9. ALPRAZOLAM. [Concomitant]
     Active Substance: ALPRAZOLAM
     Dosage: 0.5 ONE IF NECESSARY.
     Route: 065
     Dates: end: 20210906
  10. ALDACTONE [Concomitant]
     Active Substance: SPIRONOLACTONE
     Dosage: 25MG: 0.5 PER DAY
     Route: 065
     Dates: end: 20210906
  11. ENTRESTO [Concomitant]
     Active Substance: SACUBITRIL\VALSARTAN
     Dosage: 97 MG/103MG 1 PER DAY
     Route: 065
     Dates: end: 20210906
  12. PANTOMED [Concomitant]
     Dosage: 20 MG 1 PER DAY
     Route: 065
     Dates: end: 20210906

REACTIONS (3)
  - Nocardiosis [Recovering/Resolving]
  - Brain abscess [Recovering/Resolving]
  - Lung abscess [Recovering/Resolving]

NARRATIVE: CASE EVENT DATE: 20210801
